FAERS Safety Report 25445503 (Version 2)
Quarter: 2025Q2

REPORT INFORMATION
  Report Type: Spontaneous
  Country: CO (occurrence: CO)
  Receive Date: 20250617
  Receipt Date: 20250630
  Transmission Date: 20250716
  Serious: Yes (Death, Hospitalization)
  Sender: PHARMAESSENTIA
  Company Number: CO-PHARMAESSENTIA CORPORATION-CO-2025-PEC-007297

PATIENT

DRUGS (8)
  1. BESREMI [Suspect]
     Active Substance: ROPEGINTERFERON ALFA-2B-NJFT
     Indication: Polycythaemia vera
     Dates: start: 20250321
  2. BESREMI [Suspect]
     Active Substance: ROPEGINTERFERON ALFA-2B-NJFT
     Dates: start: 20250321, end: 20250516
  3. BESREMI [Suspect]
     Active Substance: ROPEGINTERFERON ALFA-2B-NJFT
  4. BESREMI [Suspect]
     Active Substance: ROPEGINTERFERON ALFA-2B-NJFT
  5. BESREMI [Suspect]
     Active Substance: ROPEGINTERFERON ALFA-2B-NJFT
  6. BESREMI [Suspect]
     Active Substance: ROPEGINTERFERON ALFA-2B-NJFT
  7. BESREMI [Suspect]
     Active Substance: ROPEGINTERFERON ALFA-2B-NJFT
  8. LOSARTAN [Concomitant]
     Active Substance: LOSARTAN
     Indication: Hypertension

REACTIONS (3)
  - Death [Fatal]
  - Oxygen saturation decreased [Not Recovered/Not Resolved]
  - Haematemesis [Not Recovered/Not Resolved]

NARRATIVE: CASE EVENT DATE: 20250526
